FAERS Safety Report 12732929 (Version 1)
Quarter: 2016Q3

REPORT INFORMATION
  Report Type: Report from Study
  Country: FR (occurrence: FR)
  Receive Date: 20160912
  Receipt Date: 20160912
  Transmission Date: 20161109
  Serious: Yes (Other)
  Sender: FDA-Public Use
  Company Number: PHHO2011FR024734

PATIENT
  Age: 84 Year
  Sex: Male
  Weight: 78 kg

DRUGS (5)
  1. DABRAFENIB [Suspect]
     Active Substance: DABRAFENIB
     Dosage: 225
     Route: 048
     Dates: start: 20110629, end: 20110720
  2. DABRAFENIB [Suspect]
     Active Substance: DABRAFENIB
     Dosage: 300
     Route: 048
     Dates: start: 20120106, end: 20130304
  3. DABRAFENIB [Suspect]
     Active Substance: DABRAFENIB
     Dosage: 300
     Route: 048
     Dates: start: 20110721, end: 20120103
  4. DABRAFENIB [Suspect]
     Active Substance: DABRAFENIB
     Indication: METASTATIC MALIGNANT MELANOMA
     Dosage: 75
     Route: 048
     Dates: start: 20110517, end: 20110608
  5. DABRAFENIB [Suspect]
     Active Substance: DABRAFENIB
     Dosage: 150
     Route: 048
     Dates: start: 20110609, end: 20110620

REACTIONS (3)
  - Basal cell carcinoma [Recovered/Resolved]
  - Second primary malignancy [Recovered/Resolved]
  - Basal cell carcinoma [Recovered/Resolved]

NARRATIVE: CASE EVENT DATE: 20110630
